FAERS Safety Report 8905662 (Version 1)
Quarter: 2012Q4

REPORT INFORMATION
  Report Type: 
  Country: US (occurrence: US)
  Receive Date: 20121113
  Receipt Date: 20121113
  Transmission Date: 20130627
  Serious: Yes (Hospitalization)
  Sender: FDA-Public Use
  Company Number: US-VERTEX PHARMACEUTICAL INC.-2012-024456

PATIENT
  Age: 62 Year
  Sex: Male
  Weight: 61.22 kg

DRUGS (9)
  1. VX-950 (TELAPREVIR) [Suspect]
     Indication: HEPATITIS C
     Dosage: 750 mg, tid
     Route: 048
  2. RIBAPAK [Suspect]
     Indication: HEPATITIS C
     Dosage: 1200 UNK, qd
  3. PEGASYS [Suspect]
     Indication: HEPATITIS C
     Dosage: 180 ?g/M
     Route: 058
  4. METFORMIN [Concomitant]
     Dosage: 500 mg, UNK
  5. GABAPENTIN [Concomitant]
     Dosage: 100 mg, UNK
  6. GLIMEPIRIDE [Concomitant]
     Dosage: 4 mg, UNK
  7. CITALOPRAM [Concomitant]
     Dosage: 40 mg, UNK
  8. ASPIRIN LOW [Concomitant]
     Dosage: 81 mg, UNK
  9. MULTIPLE VITAMINS [Concomitant]

REACTIONS (1)
  - Gallbladder disorder [Unknown]
